FAERS Safety Report 10945659 (Version 1)
Quarter: 2015Q1

REPORT INFORMATION
  Report Type: Spontaneous
  Country: US (occurrence: US)
  Receive Date: 20150323
  Receipt Date: 20150323
  Transmission Date: 20150721
  Serious: Yes (Other)
  Sender: FDA-Public Use
  Company Number: US-BAYER-2015-042178

PATIENT
  Age: 37 Year
  Sex: Female

DRUGS (1)
  1. MIRENA [Suspect]
     Active Substance: LEVONORGESTREL
     Indication: CONTRACEPTION
     Dosage: 20 MCG/24HR, CONT
     Route: 015
     Dates: start: 20150209

REACTIONS (7)
  - Neck pain [Not Recovered/Not Resolved]
  - Genital haemorrhage [None]
  - Headache [Not Recovered/Not Resolved]
  - Weight increased [None]
  - Pruritus [None]
  - Mood altered [None]
  - Musculoskeletal pain [None]
